FAERS Safety Report 23521115 (Version 1)
Quarter: 2024Q1

REPORT INFORMATION
  Report Type: 
  Country: None (occurrence: None)
  Receive Date: 20240214
  Receipt Date: 20240214
  Transmission Date: 20240410
  Serious: No
  Sender: FDA-Public Use
  Company Number: CN-ROCHE-3506963

PATIENT
  Weight: 54 kg

DRUGS (4)
  1. AVASTIN [Suspect]
     Active Substance: BEVACIZUMAB
     Dates: start: 20240129, end: 20240201
  2. ETOPOSIDE [Suspect]
     Active Substance: ETOPOSIDE
     Dates: start: 20240124, end: 20240124
  3. SODIUM CHLORIDE [Concomitant]
     Active Substance: SODIUM CHLORIDE
     Dates: start: 20240124, end: 20240124
  4. SODIUM CHLORIDE [Concomitant]
     Active Substance: SODIUM CHLORIDE
     Dates: start: 20240125, end: 20240126

REACTIONS (2)
  - Myelosuppression [None]
  - Infection [None]

NARRATIVE: CASE EVENT DATE: 20240131
